FAERS Safety Report 12312443 (Version 1)
Quarter: 2016Q2

REPORT INFORMATION
  Report Type: Spontaneous
  Country: GB (occurrence: GB)
  Receive Date: 20160428
  Receipt Date: 20160428
  Transmission Date: 20160815
  Serious: Yes (Hospitalization)
  Sender: FDA-Public Use
  Company Number: GB-ROCHE-1748732

PATIENT
  Age: 81 Year
  Sex: Female

DRUGS (13)
  1. FUROSEMIDE. [Concomitant]
     Active Substance: FUROSEMIDE
  2. PREDNISOLON [Concomitant]
     Active Substance: PREDNISOLONE
     Route: 065
  3. LUCENTIS [Suspect]
     Active Substance: RANIBIZUMAB
     Indication: AGE-RELATED MACULAR DEGENERATION
     Route: 065
     Dates: start: 20160405
  4. CIPROFLOXACIN. [Concomitant]
     Active Substance: CIPROFLOXACIN
     Route: 065
  5. MEBEVERINE [Concomitant]
     Active Substance: MEBEVERINE
  6. WARFARIN [Concomitant]
     Active Substance: WARFARIN
  7. TEICOPLANIN [Concomitant]
     Active Substance: TEICOPLANIN
  8. CALCICHEW D3 [Concomitant]
     Active Substance: CALCIUM\CHOLECALCIFEROL
  9. SIMVASTATIN. [Concomitant]
     Active Substance: SIMVASTATIN
  10. BISOPROLOL [Concomitant]
     Active Substance: BISOPROLOL
  11. VANCOMYCIN [Concomitant]
     Active Substance: VANCOMYCIN
  12. ATROPINE. [Concomitant]
     Active Substance: ATROPINE
  13. OMEPRAZOLE. [Concomitant]
     Active Substance: OMEPRAZOLE

REACTIONS (2)
  - Endophthalmitis [Recovered/Resolved with Sequelae]
  - Visual acuity reduced [Unknown]

NARRATIVE: CASE EVENT DATE: 20160407
